FAERS Safety Report 19242070 (Version 3)
Quarter: 2021Q2

REPORT INFORMATION
  Report Type: Spontaneous
  Country: AR (occurrence: AR)
  Receive Date: 20210511
  Receipt Date: 20210616
  Transmission Date: 20210717
  Serious: Yes (Other)
  Sender: FDA-Public Use
  Company Number: AR-AMGEN-ARGSP2021071061

PATIENT
  Age: 85 Year
  Sex: Female
  Weight: 65 kg

DRUGS (4)
  1. ENBREL [Suspect]
     Active Substance: ETANERCEPT
     Indication: RHEUMATOID ARTHRITIS
     Dosage: 50 MG, WEEKLY
     Route: 065
     Dates: start: 20170601
  2. VIBRAMICINA [DOXYCYCLINE] [Concomitant]
     Dosage: 50 MG, UNKNOWN
  3. PLENACOR [ATENOLOL] [Concomitant]
     Dosage: 50 MG, UNKNOWN
  4. PANTOCAS [Concomitant]
     Dosage: 20 MG, UNKNOWN

REACTIONS (4)
  - Cataract [Unknown]
  - Blindness unilateral [Unknown]
  - Dry eye [Unknown]
  - Keratitis [Unknown]

NARRATIVE: CASE EVENT DATE: 202104
